FAERS Safety Report 7672733-5 (Version None)
Quarter: 2011Q3

REPORT INFORMATION
  Report Type: 
  Country: None (occurrence: None)
  Receive Date: 20110809
  Receipt Date: 20110808
  Transmission Date: 20111222
  Serious: Yes (Congenital Anomaly)
  Sender: FDA-Public Use
  Company Number: US-ABBOTT-11P-163-0844621-00

PATIENT
  Sex: Male

DRUGS (4)
  1. ISENTRESS [Suspect]
     Indication: MATERNAL EXPOSURE DURING PREGNANCY
     Route: 064
  2. RETROVIR [Suspect]
     Indication: MATERNAL EXPOSURE DURING PREGNANCY
     Route: 064
  3. KALETRA [Suspect]
     Indication: MATERNAL EXPOSURE DURING PREGNANCY
     Route: 064
  4. COMBIVIR [Suspect]
     Indication: MATERNAL EXPOSURE DURING PREGNANCY
     Route: 064

REACTIONS (2)
  - MATERNAL EXPOSURE DURING PREGNANCY [None]
  - HYPOSPADIAS [None]
